FAERS Safety Report 5766722-5 (Version None)
Quarter: 2008Q2

REPORT INFORMATION
  Report Type: 
  Country: None (occurrence: None)
  Receive Date: 20080609
  Receipt Date: 20080529
  Transmission Date: 20081010
  Serious: Yes (Death)
  Sender: FDA-Public Use
  Company Number: KADN20080009

PATIENT
  Age: 43 Year
  Sex: Male
  Weight: 80.5135 kg

DRUGS (6)
  1. KADIAN [Suspect]
     Indication: PAIN
     Dosage: 30 MG PO Q12 HOURS PRN
     Route: 048
     Dates: start: 20080131, end: 20080220
  2. ALPRAZOLAM [Suspect]
  3. HYDROCODONE [Suspect]
  4. CYCLOBENZAPRINE HCL [Suspect]
  5. HYDROMORPHONE HCL [Suspect]
  6. DARVON [Concomitant]

REACTIONS (14)
  - ADENOMA BENIGN [None]
  - BRONCHOPNEUMONIA [None]
  - CARDIOMEGALY [None]
  - CARDIOVASCULAR DISORDER [None]
  - CHOLESTEROSIS [None]
  - COMPLETED SUICIDE [None]
  - CORONARY ARTERY STENOSIS [None]
  - DEPRESSED LEVEL OF CONSCIOUSNESS [None]
  - DRUG TOXICITY [None]
  - EXCORIATION [None]
  - HEPATIC STEATOSIS [None]
  - OVERDOSE [None]
  - PNEUMONIA ASPIRATION [None]
  - THYROID ADENOMA [None]
